FAERS Safety Report 10072481 (Version 1)
Quarter: 2014Q2

REPORT INFORMATION
  Report Type: Spontaneous
  Country: US (occurrence: US)
  Receive Date: 20140411
  Receipt Date: 20140411
  Transmission Date: 20141212
  Serious: No
  Sender: FDA-Public Use
  Company Number: US-BAYER-2014-053935

PATIENT
  Sex: Female

DRUGS (1)
  1. GADAVIST [Suspect]
     Dosage: 7.5 ML, UNK
     Route: 041
     Dates: start: 20140409, end: 20140409

REACTIONS (3)
  - Nausea [Recovered/Resolved]
  - Vomiting [Recovered/Resolved]
  - Dyspepsia [Recovered/Resolved]
